FAERS Safety Report 7583113 (Version 2)
Quarter: 2014Q2

REPORT INFORMATION
  Report Type: Spontaneous
  Country: US (occurrence: US)
  Receive Date: 20100914
  Receipt Date: 20140408
  Transmission Date: 20141212
  Serious: Yes (Hospitalization)
  Sender: FDA-Public Use
  Company Number: US-BAYER-201033288NA

PATIENT
  Age: 15 Year
  Sex: Female

DRUGS (2)
  1. YAZ [Suspect]
     Route: 048
     Dates: start: 2005
  2. TYLENOL WITH CODEINE [Concomitant]
     Indication: PAIN

REACTIONS (2)
  - Cholecystitis chronic [None]
  - Gallbladder injury [None]
